FAERS Safety Report 8914139 (Version 2)
Quarter: 2013Q2

REPORT INFORMATION
  Report Type: Spontaneous
  Country: US (occurrence: US)
  Receive Date: 20121119
  Receipt Date: 20130419
  Transmission Date: 20140414
  Serious: No
  Sender: FDA-Public Use
  Company Number: US-009507513-1211USA004679

PATIENT
  Age: 44 Year
  Sex: Female
  Weight: 56.69 kg

DRUGS (2)
  1. SAPHRIS [Suspect]
     Indication: BIPOLAR DISORDER
     Dosage: 5 MG, BID
     Route: 060
     Dates: start: 20130214
  2. DEPAKOTE [Concomitant]
     Indication: BIPOLAR DISORDER
     Dosage: 500 UNK, UNK
     Route: 048
     Dates: start: 20121001

REACTIONS (1)
  - Local swelling [Recovered/Resolved]
